FAERS Safety Report 25089492 (Version 1)
Quarter: 2025Q1

REPORT INFORMATION
  Report Type: Spontaneous
  Country: US (occurrence: None)
  Receive Date: 20250317
  Receipt Date: 20250317
  Transmission Date: 20250409
  Serious: Yes (Hospitalization)
  Sender: FDA-CTU
  Company Number: None

PATIENT
  Age: 78 Year
  Sex: Male

DRUGS (1)
  1. LINEZOLID [Suspect]
     Active Substance: LINEZOLID
     Indication: Infection

REACTIONS (7)
  - Anaemia [None]
  - Leukopenia [None]
  - Myelosuppression [None]
  - Thrombocytopenia [None]
  - Cirrhosis alcoholic [None]
  - Oropharyngeal pain [None]
  - Rhinorrhoea [None]

NARRATIVE: CASE EVENT DATE: 20250220
